FAERS Safety Report 13521943 (Version 3)
Quarter: 2017Q4

REPORT INFORMATION
  Report Type: Spontaneous
  Country: CN (occurrence: CN)
  Receive Date: 20170508
  Receipt Date: 20171027
  Transmission Date: 20180320
  Serious: Yes (Life-Threatening, Hospitalization, Other)
  Sender: FDA-Public Use
  Company Number: CN-ABBVIE-17P-035-1956019-00

PATIENT
  Age: 61 Year
  Sex: Female

DRUGS (4)
  1. VALPROATE SODIUM. [Suspect]
     Active Substance: VALPROATE SODIUM
     Route: 048
  2. OMEPRAZOLE. [Concomitant]
     Active Substance: OMEPRAZOLE
     Indication: PRODUCT USED FOR UNKNOWN INDICATION
  3. VALPROATE SODIUM. [Suspect]
     Active Substance: VALPROATE SODIUM
     Indication: SEIZURE
     Route: 065
  4. VALPROATE SODIUM. [Suspect]
     Active Substance: VALPROATE SODIUM
     Route: 042

REACTIONS (5)
  - Coma [Recovered/Resolved]
  - Mydriasis [Recovered/Resolved]
  - Mental impairment [Recovered/Resolved]
  - Hyperammonaemic encephalopathy [Recovered/Resolved]
  - Ammonia increased [Recovered/Resolved]
